FAERS Safety Report 15936453 (Version 5)
Quarter: 2019Q4

REPORT INFORMATION
  Report Type: Spontaneous
  Country: CZ (occurrence: CZ)
  Receive Date: 20190208
  Receipt Date: 20191104
  Transmission Date: 20200122
  Serious: Yes (Death, Hospitalization, Other)
  Sender: FDA-Public Use
  Company Number: CZ-AUROBINDO-AUR-APL-2019-006456

PATIENT
  Sex: Male

DRUGS (9)
  1. AMOXICILLIN+CLAVULANIC ACID [Suspect]
     Active Substance: AMOXICILLIN\CLAVULANIC ACID
     Indication: PNEUMONIA
     Dosage: UNK
     Route: 065
  2. OMEPRAZOLE. [Concomitant]
     Active Substance: OMEPRAZOLE
     Indication: PRODUCT USED FOR UNKNOWN INDICATION
     Dosage: UNK
     Route: 048
  3. AMLODIPINE [Concomitant]
     Active Substance: AMLODIPINE BESYLATE
     Indication: PRODUCT USED FOR UNKNOWN INDICATION
     Dosage: UNK
     Route: 048
  4. AMOXICILLIN+CLAVULANIC ACID [Suspect]
     Active Substance: AMOXICILLIN\CLAVULANIC ACID
     Indication: PNEUMONIA
  5. VANCOMYCIN [Concomitant]
     Active Substance: VANCOMYCIN
     Indication: PNEUMONIA
     Dosage: 1 GRAM, TWO TIMES A DAY
     Route: 065
  6. NADROPARIN [Concomitant]
     Active Substance: NADROPARIN
     Indication: PRODUCT USED FOR UNKNOWN INDICATION
     Dosage: UNK
     Route: 065
  7. METHYLPREDNISOLONE. [Suspect]
     Active Substance: METHYLPREDNISOLONE
     Indication: TOXIC EPIDERMAL NECROLYSIS
     Dosage: INCREASED TO 25-80-80MG
     Route: 065
  8. METHYLPREDNISOLONE. [Suspect]
     Active Substance: METHYLPREDNISOLONE
     Dosage: 125-0-80 MG
     Route: 065
  9. VANCOMYCIN [Concomitant]
     Active Substance: VANCOMYCIN
     Indication: BACTERIAL INFECTION
     Dosage: 500 MILLIGRAM, 3 TIMES A DAY
     Route: 065

REACTIONS (12)
  - Klebsiella infection [Unknown]
  - Morganella infection [Unknown]
  - Candida infection [Unknown]
  - Cachexia [Unknown]
  - Escherichia infection [Unknown]
  - Toxic epidermal necrolysis [Not Recovered/Not Resolved]
  - Chorioretinitis [Unknown]
  - Bacterial infection [Unknown]
  - Pneumonia pseudomonal [Unknown]
  - Dermatitis allergic [Unknown]
  - Sepsis [Fatal]
  - Impaired healing [Not Recovered/Not Resolved]
